FAERS Safety Report 13540008 (Version 1)
Quarter: 2017Q2

REPORT INFORMATION
  Report Type: Spontaneous
  Country: US (occurrence: US)
  Receive Date: 20170512
  Receipt Date: 20170512
  Transmission Date: 20170830
  Serious: Yes (Hospitalization, Other)
  Sender: FDA-Public Use
  Company Number: US-GLAXOSMITHKLINE-US2017GSK069738

PATIENT
  Age: 61 Year
  Sex: Female

DRUGS (1)
  1. FLOVENT [Suspect]
     Active Substance: FLUTICASONE PROPIONATE
     Indication: DYSPNOEA

REACTIONS (3)
  - Infection [Unknown]
  - Drug dose omission [Unknown]
  - Cellulitis [Unknown]

NARRATIVE: CASE EVENT DATE: 201704
